FAERS Safety Report 16226752 (Version 6)
Quarter: 2023Q4

REPORT INFORMATION
  Report Type: Report from Study
  Country: CA (occurrence: None)
  Receive Date: 20190423
  Receipt Date: 20231012
  Transmission Date: 20240109
  Serious: Yes (Life-Threatening, Hospitalization, Other)
  Sender: FDA-Public Use
  Company Number: CA-ORION CORPORATION ORION PHARMA-TREX2019-1205

PATIENT
  Age: 27 Year
  Sex: Female

DRUGS (35)
  1. METHOTREXATE [Suspect]
     Active Substance: METHOTREXATE
     Indication: Product used for unknown indication
  2. METHOTREXATE [Suspect]
     Active Substance: METHOTREXATE
  3. METHOTREXATE [Suspect]
     Active Substance: METHOTREXATE
  4. CYCLOSPORINE [Suspect]
     Active Substance: CYCLOSPORINE
     Indication: Product used for unknown indication
  5. CYCLOSPORINE [Suspect]
     Active Substance: CYCLOSPORINE
  6. CYCLOSPORINE [Suspect]
     Active Substance: CYCLOSPORINE
  7. CYCLOSPORINE [Suspect]
     Active Substance: CYCLOSPORINE
  8. COSENTYX [Suspect]
     Active Substance: SECUKINUMAB
     Indication: Psoriasis
  9. COSENTYX [Suspect]
     Active Substance: SECUKINUMAB
  10. COSENTYX [Suspect]
     Active Substance: SECUKINUMAB
  11. COSENTYX [Suspect]
     Active Substance: SECUKINUMAB
  12. COSENTYX [Suspect]
     Active Substance: SECUKINUMAB
  13. COSENTYX [Suspect]
     Active Substance: SECUKINUMAB
  14. COSENTYX [Suspect]
     Active Substance: SECUKINUMAB
  15. COSENTYX [Suspect]
     Active Substance: SECUKINUMAB
  16. COSENTYX [Suspect]
     Active Substance: SECUKINUMAB
  17. COSENTYX [Suspect]
     Active Substance: SECUKINUMAB
  18. COSENTYX [Suspect]
     Active Substance: SECUKINUMAB
  19. COSENTYX [Suspect]
     Active Substance: SECUKINUMAB
  20. COSENTYX [Suspect]
     Active Substance: SECUKINUMAB
  21. COSENTYX [Suspect]
     Active Substance: SECUKINUMAB
  22. COSENTYX [Suspect]
     Active Substance: SECUKINUMAB
  23. COSENTYX [Suspect]
     Active Substance: SECUKINUMAB
  24. COSENTYX [Suspect]
     Active Substance: SECUKINUMAB
  25. COSENTYX [Suspect]
     Active Substance: SECUKINUMAB
  26. COSENTYX [Suspect]
     Active Substance: SECUKINUMAB
  27. COSENTYX [Suspect]
     Active Substance: SECUKINUMAB
  28. HYDROCORTISONE [Concomitant]
     Active Substance: HYDROCORTISONE
     Dosage: ONGOING
  29. BETAMETHASONE DIPROPIONATE\CALCIPOTRIENE [Concomitant]
     Active Substance: BETAMETHASONE DIPROPIONATE\CALCIPOTRIENE
     Dosage: ONGOING
  30. BETAMETHASONE VALERATE [Concomitant]
     Active Substance: BETAMETHASONE VALERATE
     Dosage: ONGOING
  31. COAL TAR [Concomitant]
     Active Substance: COAL TAR
     Dosage: ONGOING
  32. BETADERM A [Concomitant]
     Dosage: ONGOING
  33. BETAMETHASONE DIPROPIONATE [Concomitant]
     Active Substance: BETAMETHASONE DIPROPIONATE
  34. CALCIPOTRIENE [Concomitant]
     Active Substance: CALCIPOTRIENE
  35. SALICYLIC ACID [Concomitant]
     Active Substance: BENZETHONIUM CHLORIDE\DEXTROMETHORPHAN HYDROBROMIDE\DYCLONINE HYDROCHLORIDE\GUAIFENESIN\SALICYLIC AC

REACTIONS (36)
  - Drug ineffective [Not Recovered/Not Resolved]
  - Inappropriate schedule of product administration [Not Recovered/Not Resolved]
  - Product storage error [Not Recovered/Not Resolved]
  - Poor quality product administered [Not Recovered/Not Resolved]
  - Product complaint [Not Recovered/Not Resolved]
  - Product distribution issue [Not Recovered/Not Resolved]
  - Abdominal discomfort [Not Recovered/Not Resolved]
  - Anaemia macrocytic [Not Recovered/Not Resolved]
  - Dizziness [Not Recovered/Not Resolved]
  - Gallbladder disorder [Not Recovered/Not Resolved]
  - Hepatic failure [Not Recovered/Not Resolved]
  - Movement disorder [Not Recovered/Not Resolved]
  - Pneumonia aspiration [Not Recovered/Not Resolved]
  - Pruritus [Not Recovered/Not Resolved]
  - Psoriasis [Not Recovered/Not Resolved]
  - Skin fissures [Not Recovered/Not Resolved]
  - Osteoporosis [Not Recovered/Not Resolved]
  - Ankle fracture [Not Recovered/Not Resolved]
  - Cardiac disorder [Not Recovered/Not Resolved]
  - Feeling abnormal [Not Recovered/Not Resolved]
  - Illness [Not Recovered/Not Resolved]
  - Limb discomfort [Not Recovered/Not Resolved]
  - Loss of consciousness [Not Recovered/Not Resolved]
  - Pain [Not Recovered/Not Resolved]
  - Psoriatic arthropathy [Not Recovered/Not Resolved]
  - Contusion [Not Recovered/Not Resolved]
  - Diarrhoea [Not Recovered/Not Resolved]
  - Dry mouth [Not Recovered/Not Resolved]
  - Fatigue [Not Recovered/Not Resolved]
  - Insomnia [Not Recovered/Not Resolved]
  - Onycholysis [Not Recovered/Not Resolved]
  - Wound [Not Recovered/Not Resolved]
  - Emotional distress [Not Recovered/Not Resolved]
  - Panic attack [Not Recovered/Not Resolved]
  - Rash [Not Recovered/Not Resolved]
  - Road traffic accident [Not Recovered/Not Resolved]
